FAERS Safety Report 4553480-5 (Version None)
Quarter: 2005Q1

REPORT INFORMATION
  Report Type: 
  Country: None (occurrence: None)
  Receive Date: 20050112
  Receipt Date: 20041229
  Transmission Date: 20050727
  Serious: Yes (Other)
  Sender: FDA-Public Use
  Company Number: 2004-DE-06352GD(0)

PATIENT
  Age: 2 Month
  Sex: Female

DRUGS (13)
  1. IPRATROPIUM BROMIDE [Suspect]
     Indication: BRONCHOSPASM
     Route: 055
  2. IPRATROPIUM BROMIDE [Suspect]
     Indication: PNEUMONIA
     Route: 055
  3. ALBUTEROL [Suspect]
     Indication: PNEUMONIA
     Route: 055
  4. RACEMIC EPINEPHRINE(EPINEPHRINE) [Suspect]
     Indication: BRONCHOSPASM
  5. RACEMIC EPINEPHRINE(EPINEPHRINE) [Suspect]
     Indication: PNEUMONIA
  6. METHYLPREDNISOLONE SODIUM SUCCINATE [Suspect]
     Indication: BRONCHOSPASM
  7. METHYLPREDNISOLONE SODIUM SUCCINATE [Suspect]
     Indication: PNEUMONIA
  8. CEFUROXIME [Suspect]
     Indication: BRONCHOSPASM
     Route: 042
  9. CEFUROXIME [Suspect]
     Indication: PNEUMONIA
     Route: 042
  10. ERYTHROMYCIN [Suspect]
     Indication: BRONCHOSPASM
     Route: 042
  11. ERYTHROMYCIN [Suspect]
     Indication: PNEUMONIA
     Route: 042
  12. OXYGEN [Suspect]
     Indication: BRONCHOSPASM
  13. OXYGEN [Suspect]
     Indication: PNEUMONIA

REACTIONS (17)
  - ATELECTASIS [None]
  - BLOOD PRESSURE DIASTOLIC DECREASED [None]
  - BRONCHITIS [None]
  - BRONCHOSPASM [None]
  - CHLAMYDIAL INFECTION [None]
  - CONDITION AGGRAVATED [None]
  - CREPITATIONS [None]
  - CYANOSIS [None]
  - DRUG INEFFECTIVE [None]
  - HAEMOGLOBIN DECREASED [None]
  - INTERCOSTAL RETRACTION [None]
  - PHARYNGITIS [None]
  - PLATELET COUNT INCREASED [None]
  - PNEUMONIA [None]
  - RESPIRATORY DISTRESS [None]
  - RESPIRATORY FAILURE [None]
  - TACHYCARDIA [None]
